FAERS Safety Report 4723813-5 (Version None)
Quarter: 2005Q3

REPORT INFORMATION
  Report Type: 
  Country: None (occurrence: None)
  Receive Date: 20050722
  Receipt Date: 20050709
  Transmission Date: 20060218
  Serious: Yes (Hospitalization, Other)
  Sender: FDA-Public Use
  Company Number: 2005098867

PATIENT
  Age: 43 Year
  Sex: Female
  Weight: 58.9676 kg

DRUGS (5)
  1. GEODON [Suspect]
     Indication: BIPOLAR DISORDER
     Dosage: 120 MG (60 MG, 2 IN  1 D), ORAL
     Route: 048
  2. KLONOPIN [Suspect]
     Indication: ILL-DEFINED DISORDER
     Dosage: 1 MG (1 MG, 1 IN 1 D)
  3. CYMBALTA [Concomitant]
  4. STRATTERA [Concomitant]
  5. THYROID TAB [Concomitant]

REACTIONS (4)
  - INTENTIONAL MISUSE [None]
  - OVERDOSE [None]
  - REFUSAL OF EXAMINATION [None]
  - SUICIDE ATTEMPT [None]
